FAERS Safety Report 17053384 (Version 1)
Quarter: 2019Q4

REPORT INFORMATION
  Report Type: Spontaneous
  Country: HR (occurrence: HR)
  Receive Date: 20191120
  Receipt Date: 20191120
  Transmission Date: 20200122
  Serious: Yes (Life-Threatening, Hospitalization)
  Sender: FDA-Public Use
  Company Number: HR-MYLANLABS-2019M1110351

PATIENT
  Age: 64 Year
  Sex: Female
  Weight: 87 kg

DRUGS (1)
  1. BRUFEN [Suspect]
     Active Substance: IBUPROFEN
     Indication: OSTEOARTHRITIS
     Dosage: 1800 MILLIGRAM, QD 600 MG; 3X1
     Route: 048
     Dates: start: 2019

REACTIONS (4)
  - Confusional state [Recovered/Resolved with Sequelae]
  - Oliguria [Recovered/Resolved with Sequelae]
  - Abdominal pain [Recovered/Resolved with Sequelae]
  - Nausea [Recovered/Resolved with Sequelae]

NARRATIVE: CASE EVENT DATE: 20190606
